FAERS Safety Report 8520767-0 (Version None)
Quarter: 2012Q3

REPORT INFORMATION
  Report Type: 
  Country: None (occurrence: None)
  Receive Date: 20120719
  Receipt Date: 20120717
  Transmission Date: 20120928
  Serious: Yes (Other)
  Sender: FDA-Public Use
  Company Number: US-PFIZER INC-2012142820

PATIENT
  Sex: Male
  Weight: 103 kg

DRUGS (3)
  1. LYRICA [Suspect]
     Indication: NEUROPATHY PERIPHERAL
     Dosage: UNK
     Dates: end: 20120601
  2. PREVACID [Concomitant]
     Dosage: UNK
  3. CIPROFLOXACIN HCL [Concomitant]
     Dosage: UNK

REACTIONS (4)
  - PERITONITIS [None]
  - INFECTION [None]
  - PERITONEAL FLUID ANALYSIS ABNORMAL [None]
  - STERNAL INJURY [None]
